FAERS Safety Report 9523185 (Version 2)
Quarter: 2013Q4

REPORT INFORMATION
  Report Type: Report from Study
  Country: JP (occurrence: JP)
  Receive Date: 20130913
  Receipt Date: 20131011
  Transmission Date: 20140711
  Serious: Yes (Hospitalization)
  Sender: FDA-Public Use
  Company Number: JP-GLAXOSMITHKLINE-B0921352A

PATIENT
  Age: 39 Year
  Sex: Female
  Weight: 56 kg

DRUGS (2)
  1. VOTRIENT 200MG [Suspect]
     Indication: LEIOMYOSARCOMA
     Dosage: 400MG PER DAY
     Route: 048
     Dates: start: 20121227, end: 20130221
  2. TAKEPRON [Concomitant]
     Indication: GASTROOESOPHAGEAL REFLUX DISEASE
     Route: 065

REACTIONS (1)
  - Interstitial lung disease [Recovering/Resolving]
